FAERS Safety Report 17916825 (Version 6)
Quarter: 2023Q1

REPORT INFORMATION
  Report Type: Report from Study
  Country: US (occurrence: US)
  Receive Date: 20200619
  Receipt Date: 20230113
  Transmission Date: 20230418
  Serious: Yes (Death, Life-Threatening, Hospitalization, Other)
  Sender: FDA-Public Use
  Company Number: US-AEGERION PHARMACEUTICAL, INC-AEGR004817

PATIENT
  Age: 15 Year
  Sex: Female

DRUGS (10)
  1. METRELEPTIN [Suspect]
     Active Substance: METRELEPTIN
     Indication: Congenital generalised lipodystrophy
     Dosage: 2.5 MG, QD
     Route: 058
     Dates: start: 20150315, end: 20170223
  2. METRELEPTIN [Suspect]
     Active Substance: METRELEPTIN
     Dosage: 3.5 MG, QD
     Route: 058
     Dates: start: 20170223, end: 20180402
  3. METRELEPTIN [Suspect]
     Active Substance: METRELEPTIN
     Dosage: 4 MG, QD
     Route: 058
     Dates: start: 20180402, end: 20190322
  4. METRELEPTIN [Suspect]
     Active Substance: METRELEPTIN
     Dosage: 6 MG, QD
     Route: 058
     Dates: start: 20190322, end: 20200413
  5. NPH INSULIN [Concomitant]
     Active Substance: INSULIN BEEF
     Indication: Insulin resistance
     Dosage: 60 ML, QD
     Route: 058
  6. METFORMIN [Concomitant]
     Active Substance: METFORMIN HYDROCHLORIDE
     Indication: Insulin resistance
     Dosage: 1 G, QD
     Route: 048
  7. LISINOPRIL [Concomitant]
     Active Substance: LISINOPRIL
     Indication: Hypertension
     Dosage: 10 MG, QD
     Route: 048
  8. FUROSEMIDE [Concomitant]
     Active Substance: FUROSEMIDE
     Indication: Oedema
     Dosage: 20 MG, BID
     Route: 048
  9. LACTULOSE [Concomitant]
     Active Substance: LACTULOSE
     Indication: Liver disorder
     Dosage: 15 ML, BID
     Route: 048
  10. RIFAXIMIN [Concomitant]
     Active Substance: RIFAXIMIN
     Indication: Liver disorder
     Dosage: 500 MG, BID
     Route: 048

REACTIONS (12)
  - Cardiac arrest [Fatal]
  - Acute kidney injury [Fatal]
  - Hepatic failure [Fatal]
  - Multiple organ dysfunction syndrome [Fatal]
  - Hepatic encephalopathy [Not Recovered/Not Resolved]
  - Hyperglycaemia [Not Recovered/Not Resolved]
  - Insulin resistance [Unknown]
  - Ascites [Recovered/Resolved]
  - Disease progression [Unknown]
  - Weight decreased [Unknown]
  - Treatment noncompliance [Recovered/Resolved]
  - Product availability issue [Unknown]

NARRATIVE: CASE EVENT DATE: 20191012
